FAERS Safety Report 24587089 (Version 1)
Quarter: 2024Q4

REPORT INFORMATION
  Report Type: Spontaneous
  Country: US (occurrence: None)
  Receive Date: 20241107
  Receipt Date: 20241107
  Transmission Date: 20250115
  Serious: No
  Sender: UNICHEM
  Company Number: US-ARIS GLOBAL-UCM202402-000093

PATIENT
  Age: 8 Year
  Sex: Female
  Weight: 29.4 kg

DRUGS (3)
  1. LAMOTRIGINE [Suspect]
     Active Substance: LAMOTRIGINE
     Indication: Epilepsy
     Route: 048
     Dates: start: 202210
  2. Apcion [Concomitant]
     Indication: Product used for unknown indication
     Dosage: UNKNOWN
  3. TIROSINT [Concomitant]
     Active Substance: LEVOTHYROXINE SODIUM
     Indication: Product used for unknown indication
     Dosage: UNKNOWN

REACTIONS (2)
  - Nausea [Unknown]
  - Vomiting [Recovered/Resolved]

NARRATIVE: CASE EVENT DATE: 20231231
